FAERS Safety Report 5414433-8 (Version None)
Quarter: 2007Q3

REPORT INFORMATION
  Report Type: 
  Country: None (occurrence: None)
  Receive Date: 20070731
  Receipt Date: 20070524
  Transmission Date: 20080115
  Serious: No
  Sender: FDA-Public Use
  Company Number: US200705006663

PATIENT
  Age: 64 Year
  Sex: Female
  Weight: 78.9 kg

DRUGS (6)
  1. BYETTA [Suspect]
     Indication: GLUCOSE TOLERANCE IMPAIRED
     Dosage: 5 UG, 2/D, SUBCUTANEOUS    10 UG, 2/D, SUBCUTANEOUS
     Route: 058
     Dates: start: 20060801, end: 20060901
  2. BYETTA [Suspect]
     Indication: GLUCOSE TOLERANCE IMPAIRED
     Dosage: 5 UG, 2/D, SUBCUTANEOUS    10 UG, 2/D, SUBCUTANEOUS
     Route: 058
     Dates: start: 20060901
  3. FORTAMET (METFORMIN HYDROCHLORIDE) [Concomitant]
  4. TAZTIA (DILTIAZEM HYDROCHLORIDE) [Concomitant]
  5. AMIODARONE HCL [Concomitant]
  6. SYNTHROID [Concomitant]

REACTIONS (6)
  - AGITATION [None]
  - BLOOD GLUCOSE INCREASED [None]
  - DRUG INEFFECTIVE [None]
  - NAUSEA [None]
  - THYROID FUNCTION TEST ABNORMAL [None]
  - WEIGHT DECREASED [None]
